FAERS Safety Report 13516783 (Version 2)
Quarter: 2017Q2

REPORT INFORMATION
  Report Type: Spontaneous
  Country: ES (occurrence: ES)
  Receive Date: 20170505
  Receipt Date: 20170606
  Transmission Date: 20170830
  Serious: Yes (Other)
  Sender: FDA-Public Use
  Company Number: ES-ACCORD-051123

PATIENT
  Age: 54 Year
  Sex: Female

DRUGS (1)
  1. LETROZOLE. [Suspect]
     Active Substance: LETROZOLE
     Indication: ENDOMETRIAL SARCOMA
     Dosage: DOSE WAS REDUCED TO 50% AND  AND ADMINISTERED EVERY 48,?HOURS
     Route: 048
     Dates: start: 200905

REACTIONS (2)
  - Ovarian fibrosis [Unknown]
  - Blood bilirubin increased [Recovered/Resolved]
